FAERS Safety Report 16684876 (Version 7)
Quarter: 2023Q2

REPORT INFORMATION
  Report Type: Report from Study
  Country: JP (occurrence: JP)
  Receive Date: 20190808
  Receipt Date: 20230528
  Transmission Date: 20230721
  Serious: Yes (Death, Hospitalization, Other)
  Sender: FDA-Public Use
  Company Number: JP-BRISTOL-MYERS SQUIBB COMPANY-BMS-2019-077926

PATIENT
  Age: 57 Year
  Sex: Male
  Weight: 42.9 kg

DRUGS (8)
  1. OPDIVO [Suspect]
     Active Substance: NIVOLUMAB
     Indication: Non-small cell lung cancer
     Dosage: 240 MG (3 MG/KG), Q2W
     Route: 041
     Dates: start: 20180122, end: 20190716
  2. COCARL [Concomitant]
     Active Substance: ACETAMINOPHEN
     Indication: Non-small cell lung cancer recurrent
     Dosage: 1 GRAM, Q6H
     Route: 048
     Dates: end: 20190730
  3. OXYCONTIN [Concomitant]
     Active Substance: OXYCODONE HYDROCHLORIDE
     Indication: Non-small cell lung cancer recurrent
     Dosage: 20 MILLIGRAM, Q12H
     Route: 048
     Dates: end: 20190730
  4. TENELIGLIPTIN [Concomitant]
     Active Substance: TENELIGLIPTIN
     Indication: Product used for unknown indication
     Dosage: 20 MILLIGRAM EVERYDAY
     Route: 048
     Dates: end: 20190730
  5. VOGLIBOSE [Concomitant]
     Active Substance: VOGLIBOSE
     Indication: Product used for unknown indication
     Dosage: 0.3 MILLIGRAM, Q8H
     Route: 048
     Dates: end: 20190730
  6. CANAGLIFLOZIN [Concomitant]
     Active Substance: CANAGLIFLOZIN
     Indication: Product used for unknown indication
     Dosage: 100 MILLIGRAM EVERYDAY
     Route: 048
     Dates: end: 20190730
  7. MITIGLINIDE [Concomitant]
     Active Substance: MITIGLINIDE
     Indication: Product used for unknown indication
     Dosage: 10 MILLIGRAM, Q8H
     Route: 048
     Dates: end: 20190730
  8. BETAMETHASONE [Concomitant]
     Active Substance: BETAMETHASONE
     Indication: Brain oedema
     Dosage: 1.5 MILLIGRAM, QD
     Route: 048
     Dates: end: 20190730

REACTIONS (2)
  - Cholangitis [Fatal]
  - Malignant neoplasm progression [Fatal]

NARRATIVE: CASE EVENT DATE: 20190701
